FAERS Safety Report 8774083 (Version 3)
Quarter: 2013Q2

REPORT INFORMATION
  Report Type: Spontaneous
  Country: FR (occurrence: FR)
  Receive Date: 20120908
  Receipt Date: 20130405
  Transmission Date: 20140414
  Serious: Yes (Hospitalization)
  Sender: FDA-Public Use
  Company Number: FR-ABBOTT-12P-056-0974392-00

PATIENT
  Age: 50 Year
  Sex: Male

DRUGS (12)
  1. KALETRA [Suspect]
     Indication: HIV INFECTION
     Dates: start: 20120706, end: 20120724
  2. TRUVADA [Suspect]
     Indication: HIV INFECTION
     Dosage: DF: 200/245 MG
     Route: 048
     Dates: start: 20120706, end: 20120724
  3. BACTRIM [Suspect]
     Indication: PRODUCT USED FOR UNKNOWN INDICATION
     Dates: start: 201206, end: 20120714
  4. INSULIN [Concomitant]
     Indication: TYPE 1 DIABETES MELLITUS
  5. FONDAPARINUX [Concomitant]
     Indication: PRODUCT USED FOR UNKNOWN INDICATION
  6. STILNOX [Concomitant]
     Indication: PRODUCT USED FOR UNKNOWN INDICATION
  7. FLUCONAZOLE [Concomitant]
     Indication: PRODUCT USED FOR UNKNOWN INDICATION
  8. SEROPLEX [Concomitant]
     Indication: DEPRESSION
  9. DOMPERIDONE [Concomitant]
     Indication: PRODUCT USED FOR UNKNOWN INDICATION
  10. TERCIAN [Concomitant]
     Indication: PRODUCT USED FOR UNKNOWN INDICATION
  11. TAHOR [Concomitant]
     Indication: PRODUCT USED FOR UNKNOWN INDICATION
  12. KARDEGIC [Concomitant]
     Indication: PRODUCT USED FOR UNKNOWN INDICATION

REACTIONS (5)
  - Renal failure acute [Recovering/Resolving]
  - Blood creatinine increased [Unknown]
  - Epigastric discomfort [Unknown]
  - Azotaemia [Unknown]
  - Hyperkalaemia [Unknown]
